FAERS Safety Report 11927228 (Version 1)
Quarter: 2016Q1

REPORT INFORMATION
  Report Type: Spontaneous
  Country: CA (occurrence: CA)
  Receive Date: 20160119
  Receipt Date: 20160119
  Transmission Date: 20160526
  Serious: Yes (Other)
  Sender: FDA-Public Use
  Company Number: CA-GLAXOSMITHKLINE-A1067141A

PATIENT
  Sex: Female
  Weight: 58 kg

DRUGS (4)
  1. BENLYSTA [Suspect]
     Active Substance: BELIMUMAB
     Indication: SYSTEMIC LUPUS ERYTHEMATOSUS
     Dosage: AT WEEK 0, 2, 4 THEN EVERY 4 WEEKS
     Route: 042
     Dates: start: 20120517, end: 20130923
  2. BENLYSTA [Suspect]
     Active Substance: BELIMUMAB
     Dosage: UNK
     Route: 042
     Dates: start: 20151004
  3. BENLYSTA [Suspect]
     Active Substance: BELIMUMAB
     Dosage: UNK
     Route: 042
     Dates: start: 20151117
  4. BENLYSTA [Suspect]
     Active Substance: BELIMUMAB
     Dosage: 590 MG, UNK
     Route: 042

REACTIONS (10)
  - Systemic lupus erythematosus [Recovered/Resolved]
  - Synovitis [Unknown]
  - Headache [Unknown]
  - Condition aggravated [Recovered/Resolved]
  - Skin plaque [Recovered/Resolved]
  - Nausea [Unknown]
  - Pain [Recovered/Resolved]
  - Adverse event [Unknown]
  - Urticaria [Recovered/Resolved]
  - Drug ineffective [Unknown]
